FAERS Safety Report 18318836 (Version 2)
Quarter: 2020Q4

REPORT INFORMATION
  Report Type: Spontaneous
  Country: JP (occurrence: JP)
  Receive Date: 20200928
  Receipt Date: 20201006
  Transmission Date: 20210113
  Serious: Yes (Other)
  Sender: FDA-Public Use
  Company Number: JP-TEVA-2020-JP-1832790

PATIENT
  Age: 76 Year
  Sex: Female

DRUGS (5)
  1. PREDNISOLONE. [Concomitant]
     Active Substance: PREDNISOLONE
     Indication: DERMATOMYOSITIS
     Dosage: 5 MILLIGRAM DAILY;
     Route: 065
  2. MYCOPHENOLATE MOFETIL. [Suspect]
     Active Substance: MYCOPHENOLATE MOFETIL
     Indication: DERMATOMYOSITIS
     Dosage: 2500 MILLIGRAM DAILY;
     Route: 065
  3. IMMUNOGLOBULIN [Concomitant]
     Indication: DERMATOMYOSITIS
     Route: 065
  4. TACROLIMUS. [Concomitant]
     Active Substance: TACROLIMUS
     Indication: DERMATOMYOSITIS
     Dosage: 4 MILLIGRAM DAILY;
     Route: 065
  5. AZATHIOPRINE. [Concomitant]
     Active Substance: AZATHIOPRINE
     Indication: DERMATOMYOSITIS
     Route: 065

REACTIONS (3)
  - Lung neoplasm malignant [Recovered/Resolved]
  - Diffuse large B-cell lymphoma [Recovered/Resolved]
  - Lymphoproliferative disorder [Recovered/Resolved]
